FAERS Safety Report 8796277 (Version 2)
Quarter: 2012Q4

REPORT INFORMATION
  Report Type: 
  Country: IT (occurrence: IT)
  Receive Date: 20120919
  Receipt Date: 20121127
  Transmission Date: 20130627
  Serious: Yes (Other)
  Sender: FDA-Public Use
  Company Number: IT-PFIZER INC-2012228986

PATIENT
  Age: 35 Year
  Sex: Female
  Weight: 50 kg

DRUGS (4)
  1. TAZOCIN [Suspect]
     Indication: FEBRILE NEUTROPENIA
     Dosage: 4.5 g, 1x/day
     Route: 041
     Dates: start: 20120909, end: 20120909
  2. TAZOCIN [Suspect]
     Indication: PLEURAL THICKENING
  3. LEVOXACIN [Suspect]
     Indication: FEBRILE NEUTROPENIA
     Dosage: 500 mg, 1x/day
     Route: 048
     Dates: start: 20120909, end: 20120909
  4. LEVOXACIN [Suspect]
     Indication: PLEURAL THICKENING

REACTIONS (7)
  - Dyspnoea [Recovered/Resolved]
  - Eye irritation [Recovered/Resolved]
  - Eyelid oedema [Recovered/Resolved]
  - Hypotension [Recovered/Resolved]
  - Laryngeal oedema [Recovered/Resolved]
  - Tachycardia [Recovered/Resolved]
  - Hypoaesthesia [None]
